FAERS Safety Report 21702315 (Version 1)
Quarter: 2022Q4

REPORT INFORMATION
  Report Type: Spontaneous
  Country: JP (occurrence: JP)
  Receive Date: 20221208
  Receipt Date: 20221208
  Transmission Date: 20230113
  Serious: Yes (Hospitalization, Other)
  Sender: FDA-Public Use
  Company Number: JP-NBI-J202220261BIPI

PATIENT
  Age: 65 Year
  Sex: Male
  Weight: 74.6 kg

DRUGS (5)
  1. EMPAGLIFLOZIN\LINAGLIPTIN [Suspect]
     Active Substance: EMPAGLIFLOZIN\LINAGLIPTIN
     Indication: Diabetes mellitus
     Route: 048
     Dates: end: 20221101
  2. MESTINON [Concomitant]
     Active Substance: PYRIDOSTIGMINE BROMIDE
     Indication: Product used for unknown indication
     Route: 065
     Dates: start: 20221018, end: 20221102
  3. LORATADINE OD [Concomitant]
     Indication: Product used for unknown indication
     Route: 065
     Dates: end: 20221101
  4. KENKETSU VENOGLOBULIN-IH [Concomitant]
     Indication: Product used for unknown indication
     Route: 065
     Dates: start: 20221028, end: 20221101
  5. AMPICILLIN SODIUM\SULBACTAM SODIUM [Concomitant]
     Active Substance: AMPICILLIN SODIUM\SULBACTAM SODIUM
     Indication: Product used for unknown indication
     Route: 065
     Dates: start: 20221031, end: 20221101

REACTIONS (4)
  - Pneumonia aspiration [Unknown]
  - Euglycaemic diabetic ketoacidosis [Recovered/Resolved]
  - Myasthenia gravis [Unknown]
  - SARS-CoV-2 test positive [Unknown]

NARRATIVE: CASE EVENT DATE: 20221031
